FAERS Safety Report 24926152 (Version 1)
Quarter: 2025Q1

REPORT INFORMATION
  Report Type: Spontaneous
  Country: GB (occurrence: GB)
  Receive Date: 20250205
  Receipt Date: 20250205
  Transmission Date: 20250409
  Serious: Yes (Death, Life-Threatening, Other)
  Sender: TEVA
  Company Number: None

PATIENT
  Age: 85 Year
  Sex: Male

DRUGS (1)
  1. OSELTAMIVIR [Suspect]
     Active Substance: OSELTAMIVIR
     Indication: Antiviral prophylaxis
     Dosage: DAILY DOSE: 75MG: DURATION: 09 DAYS
     Route: 065
     Dates: start: 20250114, end: 20250122

REACTIONS (1)
  - Rectal haemorrhage [Fatal]

NARRATIVE: CASE EVENT DATE: 20250123
